FAERS Safety Report 7528935-1 (Version None)
Quarter: 2011Q2

REPORT INFORMATION
  Report Type: 
  Country: None (occurrence: None)
  Receive Date: 20110607
  Receipt Date: 20110524
  Transmission Date: 20111010
  Serious: Yes (Hospitalization, Other)
  Sender: FDA-Public Use
  Company Number: PHHY2010US74775

PATIENT
  Sex: Male

DRUGS (9)
  1. ASPIRIN [Concomitant]
  2. INDOCIN [Concomitant]
  3. PLAVIX [Concomitant]
  4. TASIGNA [Suspect]
     Indication: CHRONIC MYELOID LEUKAEMIA
     Dosage: 150 MG, BID
     Route: 048
     Dates: start: 20101001, end: 20110101
  5. AMLODIPINE [Concomitant]
  6. LEVOXYL [Concomitant]
  7. IMDUR [Concomitant]
  8. METOPROLOL SUCCINATE [Concomitant]
  9. PRAVASTATIN [Concomitant]

REACTIONS (8)
  - HYPOKALAEMIA [None]
  - ANGINA PECTORIS [None]
  - DEHYDRATION [None]
  - HYPERKALAEMIA [None]
  - INFLUENZA [None]
  - VOMITING [None]
  - MYOCARDIAL INFARCTION [None]
  - NAUSEA [None]
